FAERS Safety Report 25830651 (Version 1)
Quarter: 2025Q3

REPORT INFORMATION
  Report Type: Spontaneous
  Country: BR (occurrence: BR)
  Receive Date: 20250922
  Receipt Date: 20250922
  Transmission Date: 20251020
  Serious: Yes (Other)
  Sender: MYLAN
  Company Number: BR-MYLANLABS-2025M1078448

PATIENT
  Sex: Male
  Weight: 92 kg

DRUGS (4)
  1. INSPRA [Suspect]
     Active Substance: EPLERENONE
     Indication: Cardiomegaly
     Dosage: 25 MILLIGRAM, QD (1 TABLET ONCE DAILY)
     Dates: start: 2023
  2. INSPRA [Suspect]
     Active Substance: EPLERENONE
     Dosage: 25 MILLIGRAM, QD (1 TABLET ONCE DAILY)
     Dates: start: 202509
  3. JARDIANCE [Concomitant]
     Active Substance: EMPAGLIFLOZIN
     Indication: Cardiomegaly
     Dosage: UNK, QD (ONCE DAILY)
     Dates: start: 2023
  4. ACYCLOVIR [Concomitant]
     Active Substance: ACYCLOVIR

REACTIONS (5)
  - Cataract [Not Recovered/Not Resolved]
  - Cough [Not Recovered/Not Resolved]
  - Poor quality product administered [Not Recovered/Not Resolved]
  - Off label use [Not Recovered/Not Resolved]
  - Product packaging quantity issue [Unknown]

NARRATIVE: CASE EVENT DATE: 20230101
